FAERS Safety Report 21258201 (Version 1)
Quarter: 2022Q3

REPORT INFORMATION
  Report Type: Spontaneous
  Country: US (occurrence: None)
  Receive Date: 20220825
  Receipt Date: 20220825
  Transmission Date: 20221027
  Serious: Yes (Hospitalization)
  Sender: FDA-Public Use
  Company Number: None

PATIENT
  Age: 35 Year
  Sex: Female
  Weight: 38.5 kg

DRUGS (2)
  1. PEMBROLIZUMAB [Suspect]
     Active Substance: PEMBROLIZUMAB
     Indication: Adenocarcinoma of colon
     Dates: start: 20220609, end: 20220804
  2. PANITUMUMAB [Suspect]
     Active Substance: PANITUMUMAB
     Indication: Adenocarcinoma of colon
     Dates: start: 20220609, end: 20220804

REACTIONS (5)
  - Muscle spasms [None]
  - Pain [None]
  - Surgery [None]
  - Postoperative wound complication [None]
  - Surgical procedure repeated [None]

NARRATIVE: CASE EVENT DATE: 20220819
